FAERS Safety Report 16131139 (Version 1)
Quarter: 2019Q1

REPORT INFORMATION
  Report Type: Spontaneous
  Country: US (occurrence: US)
  Receive Date: 20190328
  Receipt Date: 20190328
  Transmission Date: 20190418
  Serious: No
  Sender: FDA-Public Use
  Company Number: US-ASTRAZENECA-2018SE56474

PATIENT
  Age: 39 Year
  Sex: Female

DRUGS (1)
  1. BYDUREON BCISE [Suspect]
     Active Substance: EXENATIDE
     Indication: TYPE 2 DIABETES MELLITUS
     Dosage: 2 MG, UNKNOWN FREQUENCY
     Route: 065
     Dates: start: 201804

REACTIONS (2)
  - Urticaria [Unknown]
  - Injection site nodule [Unknown]

NARRATIVE: CASE EVENT DATE: 201804
